FAERS Safety Report 9059200 (Version 1)
Quarter: 2013Q1

REPORT INFORMATION
  Report Type: Spontaneous
  Country: US (occurrence: US)
  Receive Date: 20130211
  Receipt Date: 20130211
  Transmission Date: 20140127
  Serious: No
  Sender: FDA-Public Use
  Company Number: US-BRISTOL-MYERS SQUIBB COMPANY-17185208

PATIENT
  Age: 48 Year
  Sex: Female

DRUGS (16)
  1. METFORMIN HCL [Suspect]
  2. BUSPAR [Suspect]
  3. TYLENOL #3 [Concomitant]
     Dosage: 1DF:TAB , 300-30MG
     Route: 048
  4. SYMBICORT [Concomitant]
     Dosage: 1DF: 2 PUFFS, 80-4.5 MCG
     Route: 055
  5. ZYRTEC [Concomitant]
     Dosage: TAB 10 MG
     Route: 048
  6. CLARINEX [Concomitant]
     Dosage: 1 DF; 5MG TAB
     Route: 048
  7. IMDUR [Concomitant]
     Dosage: 1DF: 30MG TAB, 2 TAB /DAY
     Route: 048
  8. VISTARIL [Concomitant]
     Dosage: 1DF: 1CAP 25MG
     Route: 048
  9. GLUCOTROL XL [Concomitant]
     Dosage: 1DF: 1TAB 10MG
     Route: 048
  10. GLUCOTROL [Concomitant]
     Dosage: 1DF: 1TAB 10 MG?BEFORE MEALS
     Route: 048
  11. NEURONTIN [Concomitant]
     Dosage: 1DF: 1TAB:600MG
     Route: 048
  12. DIFLUCAN [Concomitant]
     Dosage: 1DF: 150MG TAB
  13. ESTRACE [Concomitant]
     Dosage: 1DF: 1MG TAB
     Route: 048
  14. CARDIZEM [Concomitant]
     Dosage: 1DF: 60MG TAB
     Route: 048
  15. FLEXERIL [Concomitant]
     Indication: MUSCLE SPASMS
     Dosage: 1DF; 10 MG TAB
     Route: 048
  16. VITAMIN B12 [Concomitant]
     Dosage: 1DF: 2500MCG
     Route: 060

REACTIONS (3)
  - Nausea [Unknown]
  - Vomiting [Unknown]
  - Rash [Unknown]
